FAERS Safety Report 6147226-7 (Version None)
Quarter: 2009Q2

REPORT INFORMATION
  Report Type: 
  Country: None (occurrence: None)
  Receive Date: 20090408
  Receipt Date: 20070626
  Transmission Date: 20091009
  Serious: Yes (Other)
  Sender: FDA-Public Use
  Company Number: US-ASTRAZENECA-2006UW24787

PATIENT
  Age: 44 Year
  Sex: Male
  Weight: 74.8 kg

DRUGS (9)
  1. SEROQUEL [Suspect]
     Indication: DEPRESSION
     Route: 048
     Dates: start: 20040101
  2. SEROQUEL [Suspect]
     Dosage: 25-800MG
     Route: 048
     Dates: start: 20040123
  3. ZYPREXA [Concomitant]
     Dates: start: 20040101
  4. PROZAC [Concomitant]
  5. TRAZODONE [Concomitant]
  6. PENICILLIN [Concomitant]
  7. SIMETHICONE [Concomitant]
  8. REGLAN [Concomitant]
  9. ZANTAC [Concomitant]

REACTIONS (21)
  - ABDOMINAL DISTENSION [None]
  - ANAEMIA [None]
  - ARTHRALGIA [None]
  - BURNING SENSATION [None]
  - DECREASED APPETITE [None]
  - DYSPEPSIA [None]
  - FLATULENCE [None]
  - GENITAL DISORDER MALE [None]
  - HALLUCINATION [None]
  - HALLUCINATION, VISUAL [None]
  - HEADACHE [None]
  - HYPERGLYCAEMIA [None]
  - ILLUSION [None]
  - MOOD SWINGS [None]
  - OSTEOARTHRITIS [None]
  - POLYP COLORECTAL [None]
  - RECTAL HAEMORRHAGE [None]
  - SPEECH DISORDER [None]
  - SUICIDAL IDEATION [None]
  - TACHYPHRENIA [None]
  - TOOTH INJURY [None]
